FAERS Safety Report 8174531-5 (Version None)
Quarter: 2012Q1

REPORT INFORMATION
  Report Type: 
  Country: None (occurrence: None)
  Receive Date: 20120229
  Receipt Date: 20120224
  Transmission Date: 20120608
  Serious: Yes (Hospitalization, Other)
  Sender: FDA-Public Use
  Company Number: FR-PFIZER INC-2012048892

PATIENT
  Age: 51 Year
  Sex: Male

DRUGS (7)
  1. VITAMIN B1 AND B6 [Concomitant]
     Dosage: UNK
     Dates: start: 20111228
  2. LASIX [Concomitant]
     Dosage: 20 MG, UNK
     Dates: start: 20120111, end: 20120111
  3. PANTOPRAZOLE [Concomitant]
     Dosage: UNK
     Dates: start: 20120103, end: 20120106
  4. OXAZEPAM [Concomitant]
     Dosage: UNK
     Dates: start: 20111228
  5. FOLIC ACID [Concomitant]
     Dosage: UNK
     Dates: start: 20120102
  6. LASIX [Concomitant]
     Dosage: UNK
     Route: 048
     Dates: start: 20111231, end: 20120106
  7. ALDACTONE [Suspect]
     Dosage: 50 MG, 1X/DAY
     Route: 048
     Dates: start: 20111231, end: 20120106

REACTIONS (4)
  - EPISTAXIS [None]
  - THROMBOCYTOPENIA [None]
  - DISSEMINATED INTRAVASCULAR COAGULATION [None]
  - LIP HAEMORRHAGE [None]
